FAERS Safety Report 6131296-6 (Version None)
Quarter: 2009Q1

REPORT INFORMATION
  Report Type: 
  Country: None (occurrence: None)
  Receive Date: 20090325
  Receipt Date: 20080522
  Transmission Date: 20090719
  Serious: Yes (Other)
  Sender: FDA-Public Use
  Company Number: US-BRISTOL-MYERS SQUIBB COMPANY-14106033

PATIENT
  Age: 60 Year
  Sex: Female

DRUGS (3)
  1. ERBITUX [Suspect]
     Indication: LARYNGEAL CANCER
     Route: 042
     Dates: start: 20080306, end: 20080306
  2. DEXAMETHASONE TAB [Concomitant]
  3. ALBUTEROL [Concomitant]

REACTIONS (1)
  - INFUSION RELATED REACTION [None]
